FAERS Safety Report 4467372-3 (Version None)
Quarter: 2004Q4

REPORT INFORMATION
  Report Type: 
  Country: None (occurrence: None)
  Receive Date: 20041004
  Receipt Date: 20040921
  Transmission Date: 20050328
  Serious: Yes (Hospitalization, Other)
  Sender: FDA-Public Use
  Company Number: 2004069049

PATIENT
  Sex: Female
  Weight: 90.7194 kg

DRUGS (4)
  1. NEURONTIN [Suspect]
     Indication: REFLEX SYMPATHETIC DYSTROPHY
     Dosage: SEE IMAGE
     Route: 048
  2. CLONAZEPAM [Concomitant]
  3. BACLOFEN [Concomitant]
  4. OXYCODONE HYDROCHLORIODE (OXYCODONE HYDROCHLORIDE) [Concomitant]

REACTIONS (4)
  - CHOLELITHIASIS [None]
  - GASTRIC HAEMORRHAGE [None]
  - OESOPHAGEAL DISORDER [None]
  - STOMACH DISCOMFORT [None]
